FAERS Safety Report 16222729 (Version 1)
Quarter: 2019Q2

REPORT INFORMATION
  Report Type: Spontaneous
  Country: US (occurrence: US)
  Receive Date: 20190422
  Receipt Date: 20190422
  Transmission Date: 20190711
  Serious: Yes (Life-Threatening, Hospitalization, Disabling, Other)
  Sender: FDA-Public Use
  Company Number: US-GLAXOSMITHKLINE-US2019AMR069789

PATIENT
  Age: 58 Year
  Sex: Male
  Weight: 56 kg

DRUGS (1)
  1. TRANSDERM SCOP [Suspect]
     Active Substance: SCOPOLAMINE
     Indication: MOTION SICKNESS
     Dosage: 5 MG, UNK
     Route: 062
     Dates: start: 20180918, end: 20180919

REACTIONS (10)
  - Coma scale abnormal [Recovered/Resolved with Sequelae]
  - Wrong technique in product usage process [Unknown]
  - Product use in unapproved indication [Unknown]
  - Brain oedema [Recovered/Resolved with Sequelae]
  - Pain [Unknown]
  - Coma [Recovered/Resolved with Sequelae]
  - Brain injury [Recovered/Resolved with Sequelae]
  - Body temperature increased [Recovered/Resolved with Sequelae]
  - Electroencephalogram abnormal [Unknown]
  - Hypoxia [Recovered/Resolved with Sequelae]

NARRATIVE: CASE EVENT DATE: 20180918
